FAERS Safety Report 13351679 (Version 3)
Quarter: 2017Q3

REPORT INFORMATION
  Report Type: Spontaneous
  Country: CA (occurrence: CA)
  Receive Date: 20170320
  Receipt Date: 20170811
  Transmission Date: 20171127
  Serious: Yes (Other)
  Sender: FDA-Public Use
  Company Number: CA-PFIZER INC-2017065095

PATIENT
  Age: 54 Year
  Sex: Male
  Weight: 125 kg

DRUGS (10)
  1. METHOTREXATE SODIUM. [Suspect]
     Active Substance: METHOTREXATE SODIUM
     Dosage: 2.5 MG, WEEKLY
     Route: 048
     Dates: start: 201503
  2. INFLECTRA [Suspect]
     Active Substance: INFLIXIMAB-DYYB
     Dosage: 400 MG, CYCLIC (EVERY 0, 2, 6, WEEKS THEN EVERY 8 WEEKS FOR 11 MONTHS)
     Route: 042
  3. HYDROCHLOROTHIAZIDE. [Concomitant]
     Active Substance: HYDROCHLOROTHIAZIDE
     Dosage: 5 MG, 1X/DAY
     Route: 065
     Dates: start: 2014
  4. SULFASALAZINE. [Concomitant]
     Active Substance: SULFASALAZINE
     Dosage: UNK
     Route: 065
  5. LEUCOVORIN. [Suspect]
     Active Substance: LEUCOVORIN
     Dosage: 5 MG, UNK
     Route: 048
     Dates: start: 201503
  6. ROSUVASTATIN. [Concomitant]
     Active Substance: ROSUVASTATIN
     Dosage: 20 MG, 1X/DAY
     Route: 065
     Dates: start: 2014
  7. SULFASALAZINE. [Concomitant]
     Active Substance: SULFASALAZINE
     Dosage: UNK
     Route: 065
     Dates: start: 2015
  8. INFLECTRA [Suspect]
     Active Substance: INFLIXIMAB-DYYB
     Indication: RHEUMATOID ARTHRITIS
     Dosage: 400 MG, CYCLIC (EVERY 0, 2, 6, WEEKS THEN EVERY 8 WEEKS FOR 11 MONTHS)
     Route: 042
     Dates: start: 20170201, end: 20170215
  9. QUINAPRIL. [Suspect]
     Active Substance: QUINAPRIL
     Dosage: 40 MG, 1X/DAY
     Route: 065
     Dates: start: 2012
  10. OXYCODONE [Concomitant]
     Active Substance: OXYCODONE
     Indication: PAIN
     Dosage: 3.25MG-5MG (6-8 PILLS), DAILY
     Route: 048

REACTIONS (3)
  - Dyspnoea [Unknown]
  - Lower respiratory tract infection [Recovered/Resolved]
  - Blood pressure fluctuation [Recovered/Resolved]

NARRATIVE: CASE EVENT DATE: 20170201
